FAERS Safety Report 23181275 (Version 1)
Quarter: 2023Q4

REPORT INFORMATION
  Report Type: Spontaneous
  Country: CN (occurrence: CN)
  Receive Date: 20231114
  Receipt Date: 20231114
  Transmission Date: 20240109
  Serious: Yes (Hospitalization, Other)
  Sender: FDA-Public Use
  Company Number: CN-NOVAST LABORATORIES INC.-2023NOV000329

PATIENT

DRUGS (1)
  1. METOPROLOL SUCCINATE [Suspect]
     Active Substance: METOPROLOL SUCCINATE
     Indication: Arrhythmia
     Dosage: 25 MILLIGRAM, QD
     Route: 048
     Dates: start: 20231024, end: 20231026

REACTIONS (4)
  - Cardiac discomfort [Recovering/Resolving]
  - Palpitations [Recovering/Resolving]
  - Dyspnoea [Recovering/Resolving]
  - Product use in unapproved indication [Unknown]

NARRATIVE: CASE EVENT DATE: 20231026
